FAERS Safety Report 15774509 (Version 1)
Quarter: 2018Q4

REPORT INFORMATION
  Report Type: Not Available
  Country: US (occurrence: US)
  Receive Date: 20181229
  Receipt Date: 20181229
  Transmission Date: 20190205
  Serious: No
  Sender: FDA-Public Use
  Company Number: US-NEUROCRINE BIOSCIENCES INC.-2018NBI03609

PATIENT
  Sex: Female

DRUGS (10)
  1. CALCIUM + VITAMIN D [Concomitant]
     Active Substance: CALCIUM\VITAMIN D
  2. INGREZZA [Suspect]
     Active Substance: VALBENAZINE
     Indication: TARDIVE DYSKINESIA
     Route: 048
     Dates: start: 20181019
  3. PRIMIDONE. [Concomitant]
     Active Substance: PRIMIDONE
  4. PRAMIPEXOLE. [Concomitant]
     Active Substance: PRAMIPEXOLE
  5. TIGAN [Concomitant]
     Active Substance: TRIMETHOBENZAMIDE HYDROCHLORIDE
  6. CLONZEPAM [Concomitant]
     Active Substance: CLONAZEPAM
  7. GINGKO BILOBA [Concomitant]
     Active Substance: GINKGO
  8. MELATONIN [Concomitant]
     Active Substance: MELATONIN
  9. BENZTROPINE. [Concomitant]
     Active Substance: BENZTROPINE
  10. ZOFRAN [Concomitant]
     Active Substance: ONDANSETRON HYDROCHLORIDE

REACTIONS (1)
  - Drug effect decreased [None]

NARRATIVE: CASE EVENT DATE: 2018
